FAERS Safety Report 18316948 (Version 1)
Quarter: 2020Q3

REPORT INFORMATION
  Report Type: Spontaneous
  Country: ES (occurrence: ES)
  Receive Date: 20200928
  Receipt Date: 20200928
  Transmission Date: 20201103
  Serious: Yes (Life-Threatening, Hospitalization, Other)
  Sender: FDA-Public Use
  Company Number: ES-AUROBINDO-AUR-APL-2020-049419

PATIENT
  Age: 64 Year
  Sex: Female

DRUGS (3)
  1. DEPRAX [SERTRALINE HYDROCHLORIDE] [Interacting]
     Active Substance: SERTRALINE HYDROCHLORIDE
     Indication: PRODUCT USED FOR UNKNOWN INDICATION
     Dosage: 300 MILLIGRAM, 1 TOTAL
     Route: 048
     Dates: start: 20200911, end: 20200911
  2. MIRTAZAPINE 30MG FILM?COATED TABLETS [Suspect]
     Active Substance: MIRTAZAPINE
     Indication: PRODUCT USED FOR UNKNOWN INDICATION
     Dosage: 900 MILLIGRAM, 1 TOTAL
     Route: 048
     Dates: start: 20200911, end: 20200911
  3. TRANXILIUM [Interacting]
     Active Substance: CLORAZEPATE DIPOTASSIUM
     Indication: PRODUCT USED FOR UNKNOWN INDICATION
     Dosage: 600 MILLIGRAM,1 TOTAL (TRANXILIUM 10 MG 2 BOXES)
     Route: 048
     Dates: start: 20200911, end: 20200911

REACTIONS (2)
  - Aspiration [Recovering/Resolving]
  - Confusional state [Recovering/Resolving]

NARRATIVE: CASE EVENT DATE: 20200912
